FAERS Safety Report 5912468-X (Version None)
Quarter: 2008Q4

REPORT INFORMATION
  Report Type: 
  Country: None (occurrence: None)
  Receive Date: 20081008
  Receipt Date: 20080930
  Transmission Date: 20090506
  Serious: Yes (Hospitalization)
  Sender: FDA-Public Use
  Company Number: FR-AVENTIS-200813512FR

PATIENT
  Age: 29 Year
  Sex: Male

DRUGS (5)
  1. RIFADIN [Suspect]
     Indication: TUBERCULOSIS
     Route: 048
     Dates: start: 20080724, end: 20080811
  2. RIMIFON [Suspect]
     Indication: TUBERCULOSIS
     Route: 048
     Dates: start: 20080724, end: 20080811
  3. MYAMBUTOL [Concomitant]
     Route: 048
     Dates: start: 20080724, end: 20080811
  4. AMIKLIN                            /00391001/ [Concomitant]
     Route: 048
     Dates: start: 20080724, end: 20080811
  5. CLOPIXOL (DECANOATE) [Concomitant]

REACTIONS (3)
  - CONDITION AGGRAVATED [None]
  - HEPATOCELLULAR INJURY [None]
  - NEUROPATHY PERIPHERAL [None]
